FAERS Safety Report 23722166 (Version 1)
Quarter: 2024Q2

REPORT INFORMATION
  Report Type: Spontaneous
  Country: US (occurrence: US)
  Receive Date: 20240409
  Receipt Date: 20240409
  Transmission Date: 20240716
  Serious: Yes (Other)
  Sender: FDA-Public Use
  Company Number: US-PFM-2024-02130

PATIENT
  Age: 27 Year
  Sex: Male

DRUGS (7)
  1. PROPRANOLOL [Suspect]
     Active Substance: PROPRANOLOL HYDROCHLORIDE
     Indication: Atrial fibrillation
     Dosage: UNK
     Route: 065
  2. PROPRANOLOL [Suspect]
     Active Substance: PROPRANOLOL HYDROCHLORIDE
     Indication: Off label use
  3. IODINE [Suspect]
     Active Substance: IODINE
     Indication: Atrial fibrillation
     Dosage: UNK
     Route: 065
  4. UNSPECIFIED INGREDIENT [Suspect]
     Active Substance: UNSPECIFIED INGREDIENT
     Indication: Atrial fibrillation
     Dosage: UNK
     Route: 065
  5. UNSPECIFIED INGREDIENT [Suspect]
     Active Substance: UNSPECIFIED INGREDIENT
     Indication: Atrial fibrillation
     Dosage: UNK
     Route: 065
  6. UNSPECIFIED INGREDIENT [Suspect]
     Active Substance: UNSPECIFIED INGREDIENT
     Indication: Atrial fibrillation
     Dosage: UNK
     Route: 065
  7. UNSPECIFIED INGREDIENT [Suspect]
     Active Substance: UNSPECIFIED INGREDIENT
     Indication: Atrial fibrillation
     Dosage: UNK
     Route: 065

REACTIONS (6)
  - Acute respiratory distress syndrome [Unknown]
  - Acute kidney injury [Unknown]
  - Atrial thrombosis [Unknown]
  - Product use issue [Unknown]
  - Product use in unapproved indication [Unknown]
  - Off label use [Unknown]
